FAERS Safety Report 16783655 (Version 1)
Quarter: 2019Q3

REPORT INFORMATION
  Report Type: Report from Study
  Country: GR (occurrence: GR)
  Receive Date: 20190908
  Receipt Date: 20190908
  Transmission Date: 20191005
  Serious: Yes (Hospitalization)
  Sender: FDA-Public Use
  Company Number: GR-ELI_LILLY_AND_COMPANY-GR201908014246

PATIENT
  Age: 90 Year
  Sex: Female

DRUGS (13)
  1. LASIX [Concomitant]
     Active Substance: FUROSEMIDE
     Indication: OEDEMA
     Dosage: 0.5 DOSAGE FORM, DAILY
  2. MODULAIR [Concomitant]
     Indication: ASTHMA
     Dosage: 1 DOSAGE FORM, DAILY
  3. RELVAR [Concomitant]
     Active Substance: FLUTICASONE FUROATE\VILANTEROL TRIFENATATE
     Indication: ASTHMA
     Dosage: 1 DOSAGE FORM, DAILY
     Route: 055
  4. VASTAREL [Concomitant]
     Active Substance: TRIMETAZIDINE DIHYDROCHLORIDE
     Indication: PRODUCT USED FOR UNKNOWN INDICATION
     Dosage: 1 DOSAGE FORM, DAILY
  5. DEPON [Concomitant]
     Active Substance: ACETAMINOPHEN
     Indication: RHEUMATIC DISORDER
     Dosage: UNK, PRN
  6. CALCIORAL D3 [Concomitant]
     Indication: OSTEOPOROSIS
     Dosage: 1 DOSAGE FORM, DAILY
  7. METHOTREXATE. [Concomitant]
     Active Substance: METHOTREXATE
     Indication: RHEUMATIC DISORDER
     Dosage: UNK, OTHER (3 TABLETS ON SAT AND 2 TABLETS ON SUN)
  8. CONCOR [Concomitant]
     Active Substance: BISOPROLOL FUMARATE
     Indication: ARRHYTHMIA
     Dosage: 0.5 DOSAGE FORM, DAILY
  9. LUTEIN [ZEAXANTHIN] [Concomitant]
     Indication: MACULOPATHY
     Dosage: 1 DOSAGE FORM, DAILY
  10. TERIPARATIDE [Suspect]
     Active Substance: TERIPARATIDE
     Indication: OSTEOPOROSIS
     Dosage: 20 UG, DAILY
     Route: 058
     Dates: start: 20190219, end: 20190827
  11. PREZOLON [Concomitant]
     Active Substance: PREDNISOLONE
     Indication: RHEUMATIC DISORDER
     Dosage: 1 DOSAGE FORM, DAILY
  12. CONTROLOC [Concomitant]
     Active Substance: PANTOPRAZOLE SODIUM
     Indication: PROPHYLAXIS
     Dosage: 1 DOSAGE FORM, DAILY
  13. XARELTO [Concomitant]
     Active Substance: RIVAROXABAN
     Indication: THROMBOSIS
     Dosage: 1 DOSAGE FORM, DAILY

REACTIONS (2)
  - Anaemia [Not Recovered/Not Resolved]
  - Haematochezia [Not Recovered/Not Resolved]

NARRATIVE: CASE EVENT DATE: 20190817
